FAERS Safety Report 9167367 (Version 1)
Quarter: 2013Q1

REPORT INFORMATION
  Report Type: Spontaneous
  Country: NL (occurrence: NL)
  Receive Date: 20130318
  Receipt Date: 20130318
  Transmission Date: 20140127
  Serious: Yes (Other)
  Sender: FDA-Public Use
  Company Number: NL-JNJFOC-20130303752

PATIENT
  Sex: Male

DRUGS (3)
  1. ZYTIGA [Suspect]
     Indication: PROSTATE CANCER
     Dosage: DURING SECOND WEEK
     Route: 048
  2. ZYTIGA [Suspect]
     Indication: PROSTATE CANCER
     Dosage: DURING THIRD WEEK
     Route: 048
  3. ZYTIGA [Suspect]
     Indication: PROSTATE CANCER
     Dosage: DURING FIRST WEEK.
     Route: 048

REACTIONS (3)
  - Haemolytic uraemic syndrome [Unknown]
  - Disease progression [Unknown]
  - Incorrect dose administered [Unknown]
